FAERS Safety Report 13718291 (Version 2)
Quarter: 2017Q3

REPORT INFORMATION
  Report Type: Report from Study
  Country: LB (occurrence: LB)
  Receive Date: 20170705
  Receipt Date: 20170717
  Transmission Date: 20171127
  Serious: Yes (Other)
  Sender: FDA-Public Use
  Company Number: PHHY2017LB092471

PATIENT
  Sex: Male

DRUGS (2)
  1. TASIGNA [Suspect]
     Active Substance: NILOTINIB
     Indication: PRODUCT USED FOR UNKNOWN INDICATION
     Dosage: 600 MG, QD
     Route: 048
     Dates: start: 201404, end: 201507
  2. TASIGNA [Suspect]
     Active Substance: NILOTINIB
     Dosage: 300 MG, Q12H
     Route: 048
     Dates: start: 201602

REACTIONS (9)
  - Tachycardia [Recovered/Resolved]
  - Influenza [Recovered/Resolved]
  - Hot flush [Unknown]
  - Hypothermia [Unknown]
  - Pyrexia [Recovered/Resolved]
  - Dizziness [Unknown]
  - Palpitations [Unknown]
  - Nephrolithiasis [Recovered/Resolved]
  - Depression [Unknown]
